FAERS Safety Report 8991214 (Version 1)
Quarter: 2012Q4

REPORT INFORMATION
  Report Type: 
  Country: NL (occurrence: NL)
  Receive Date: 20121231
  Receipt Date: 20121231
  Transmission Date: 20130627
  Serious: Yes (Other)
  Sender: FDA-Public Use
  Company Number: NL-AMGEN-NLDSP2012083567

PATIENT
  Age: 43 Year
  Sex: Male

DRUGS (3)
  1. ENBREL [Suspect]
     Indication: PSORIATIC ARTHROPATHY
     Dosage: 25 mg, qwk
     Dates: start: 2010
  2. ENBREL [Suspect]
     Dosage: 50 mg, weekly
  3. ENBREL [Suspect]
     Dosage: 50 mg, every 3 weeks

REACTIONS (1)
  - Psoriatic arthropathy [Not Recovered/Not Resolved]
